FAERS Safety Report 7699560-7 (Version None)
Quarter: 2011Q3

REPORT INFORMATION
  Report Type: 
  Country: None (occurrence: None)
  Receive Date: 20110822
  Receipt Date: 20110818
  Transmission Date: 20111222
  Serious: Yes (Other)
  Sender: FDA-Public Use
  Company Number: US-BRISTOL-MYERS SQUIBB COMPANY-15985815

PATIENT
  Age: 47 Year
  Sex: Female

DRUGS (13)
  1. SPIRONOLACTONE [Concomitant]
  2. ATENOLOL [Concomitant]
  3. HYDROCHLOROTHIAZIDE [Concomitant]
  4. BUSPIRONE [Concomitant]
  5. LIPITOR [Concomitant]
  6. LOVAZA [Concomitant]
     Indication: CARDIAC DISORDER
  7. SPIRIVA [Concomitant]
  8. EFFEXOR [Concomitant]
  9. FUROSEMIDE [Concomitant]
  10. ABILIFY [Suspect]
     Indication: BIPOLAR DISORDER
  11. BISACODYL [Concomitant]
  12. OMEPRAZOLE [Concomitant]
  13. PROVENTIL [Concomitant]

REACTIONS (8)
  - COUGH [None]
  - URINARY INCONTINENCE [None]
  - MALAISE [None]
  - DYSKINESIA [None]
  - CARDIAC FAILURE CONGESTIVE [None]
  - WEIGHT INCREASED [None]
  - SPEECH DISORDER [None]
  - OEDEMA PERIPHERAL [None]
